FAERS Safety Report 5277978-X (Version None)
Quarter: 2007Q1

REPORT INFORMATION
  Report Type: 
  Country: None (occurrence: None)
  Receive Date: 20070321
  Receipt Date: 20070314
  Transmission Date: 20070707
  Serious: Yes (Hospitalization)
  Sender: FDA-Public Use
  Company Number: 154064ISR

PATIENT
  Age: 26 Year
  Sex: Female

DRUGS (2)
  1. COPAXONE [Suspect]
     Indication: MULTIPLE SCLEROSIS
     Dosage: 20 MG (20 MG, 1 IN 1 D) SUBCUTANEOUS
     Route: 058
     Dates: start: 20060314, end: 20070224
  2. CITALOPRAM HYDROBROMIDE [Concomitant]

REACTIONS (10)
  - DIZZINESS [None]
  - ERYTHEMA [None]
  - FEAR [None]
  - FEELING HOT [None]
  - FLUSHING [None]
  - NAUSEA [None]
  - PRURITUS [None]
  - SHOCK [None]
  - SPEECH DISORDER [None]
  - URTICARIA [None]
